FAERS Safety Report 8823005 (Version 1)
Quarter: 2012Q4

REPORT INFORMATION
  Report Type: Report from Study
  Country: BR (occurrence: BR)
  Receive Date: 20121003
  Receipt Date: 20121003
  Transmission Date: 20130627
  Serious: Yes (Hospitalization)
  Sender: FDA-Public Use
  Company Number: BR-JNJFOC-20121001345

PATIENT
  Sex: Male
  Weight: 70 kg

DRUGS (5)
  1. RIVAROXABAN [Suspect]
     Indication: EMBOLISM VENOUS
     Route: 048
     Dates: start: 201208, end: 2012
  2. RIVAROXABAN [Suspect]
     Indication: EMBOLISM VENOUS
     Route: 048
     Dates: start: 2012
  3. RIVAROXABAN [Suspect]
     Indication: THROMBOSIS
     Route: 048
     Dates: start: 201208, end: 2012
  4. RIVAROXABAN [Suspect]
     Indication: THROMBOSIS
     Route: 048
     Dates: start: 2012
  5. INSULIN [Concomitant]
     Indication: DIABETES MELLITUS
     Route: 058
     Dates: start: 201209

REACTIONS (4)
  - Asthenia [Recovering/Resolving]
  - Condition aggravated [Recovering/Resolving]
  - Weight decreased [Recovering/Resolving]
  - Epistaxis [Recovered/Resolved]
